FAERS Safety Report 8485584 (Version 4)
Quarter: 2013Q2

REPORT INFORMATION
  Report Type: Report from Study
  Country: US (occurrence: US)
  Receive Date: 20120330
  Receipt Date: 20130618
  Transmission Date: 20140414
  Serious: Yes (Hospitalization)
  Sender: FDA-Public Use
  Company Number: US-ASTRAZENECA-2012SE20020

PATIENT
  Age: 22981 Day
  Sex: Female

DRUGS (16)
  1. AZD6140 [Suspect]
     Indication: CORONARY ARTERY DISEASE
     Route: 048
     Dates: start: 20111216, end: 20120216
  2. AZD6140 [Suspect]
     Indication: CORONARY ARTERY DISEASE
     Route: 048
     Dates: start: 20120222, end: 20120604
  3. AZD6140 [Suspect]
     Indication: CORONARY ARTERY DISEASE
     Route: 048
     Dates: start: 20120608
  4. BACLOFEN [Suspect]
     Indication: PAIN
     Route: 048
     Dates: end: 20120217
  5. PREGABALIN [Suspect]
     Indication: PAIN
     Route: 048
     Dates: end: 20120217
  6. CRESTOR [Concomitant]
     Indication: HYPERLIPIDAEMIA
     Route: 048
  7. ARTIFICIAL TEARS [Concomitant]
     Indication: DRY EYE
     Route: 047
  8. SALSALATE [Concomitant]
     Indication: PAIN
     Route: 048
     Dates: end: 20120605
  9. ALLOPURINOL [Concomitant]
     Indication: GOUT
     Route: 048
  10. TRAZADONE [Concomitant]
     Indication: INSOMNIA
     Route: 048
  11. ZYRTEC [Concomitant]
     Indication: RHINITIS ALLERGIC
     Route: 048
  12. METOPROLOL XL [Concomitant]
     Indication: HYPERTENSION
     Route: 048
  13. ATROVENT [Concomitant]
     Indication: CHRONIC OBSTRUCTIVE PULMONARY DISEASE
     Dosage: AROUND EVERY TWO MONTHS
     Route: 055
  14. ATROVENT [Concomitant]
     Indication: ASTHMA
     Dosage: AROUND EVERY TWO MONTHS
     Route: 055
  15. LISINOPRIL/HCTZ [Concomitant]
     Indication: HYPERTENSION
     Route: 048
     Dates: end: 20120605
  16. ASA [Concomitant]
     Route: 048
     Dates: start: 20110310

REACTIONS (1)
  - Toxic encephalopathy [Recovered/Resolved]
